FAERS Safety Report 14778941 (Version 2)
Quarter: 2018Q2

REPORT INFORMATION
  Report Type: Spontaneous
  Country: US (occurrence: US)
  Receive Date: 20180419
  Receipt Date: 20180627
  Transmission Date: 20180711
  Serious: No
  Sender: FDA-Public Use
  Company Number: US-LEO PHARMA-308453

PATIENT
  Sex: Female

DRUGS (6)
  1. PICATO [Suspect]
     Active Substance: INGENOL MEBUTATE
  2. CRESTOR [Concomitant]
     Active Substance: ROSUVASTATIN CALCIUM
     Indication: BLOOD CHOLESTEROL INCREASED
  3. PICATO [Suspect]
     Active Substance: INGENOL MEBUTATE
     Indication: PRECANCEROUS SKIN LESION
     Dosage: APPLY TO BACK OF BOTH HANDS (4 X 4 INCH AREA) DAILY FOR 3 DAYS
     Route: 061
  4. LOSARTAN. [Concomitant]
     Active Substance: LOSARTAN
     Indication: HYPERTENSION
  5. PICATO [Suspect]
     Active Substance: INGENOL MEBUTATE
     Dates: start: 20180526, end: 20180527
  6. PICATO [Suspect]
     Active Substance: INGENOL MEBUTATE

REACTIONS (5)
  - Drug administration error [Unknown]
  - Impaired healing [Recovered/Resolved]
  - Pain [Recovered/Resolved]
  - Application site erythema [Recovered/Resolved]
  - Inappropriate schedule of drug administration [Unknown]
